FAERS Safety Report 5946059-1 (Version None)
Quarter: 2008Q4

REPORT INFORMATION
  Report Type: 
  Country: None (occurrence: None)
  Receive Date: 20081110
  Receipt Date: 20081029
  Transmission Date: 20090506
  Serious: Yes (Hospitalization)
  Sender: FDA-Public Use
  Company Number: US-AMGEN-QUU316199

PATIENT
  Age: 65 Year
  Sex: Female

DRUGS (3)
  1. NEULASTA [Suspect]
     Indication: CHEMOTHERAPY
     Route: 065
     Dates: start: 20080925
  2. CARBOPLATIN [Concomitant]
     Dates: start: 20080901
  3. TAXOL [Concomitant]
     Dates: start: 20080901

REACTIONS (1)
  - DYSPNOEA [None]
